FAERS Safety Report 24834989 (Version 3)
Quarter: 2025Q2

REPORT INFORMATION
  Report Type: Spontaneous
  Country: US (occurrence: US)
  Receive Date: 20250113
  Receipt Date: 20250421
  Transmission Date: 20250717
  Serious: Yes (Other)
  Sender: NOVARTIS
  Company Number: US-002147023-NVSC2025US003709

PATIENT
  Sex: Male

DRUGS (2)
  1. COSENTYX [Suspect]
     Active Substance: SECUKINUMAB
     Indication: Product used for unknown indication
     Dosage: UNK, QW (INJECT 1 PEN UNDER THE SKIN ONCE WEEKLY FOR 5 WEEKS)
     Route: 065
  2. COSENTYX [Suspect]
     Active Substance: SECUKINUMAB
     Dosage: UNK, Q4W
     Route: 065

REACTIONS (7)
  - Pneumonia [Unknown]
  - Accidental exposure to product [Unknown]
  - Device defective [Unknown]
  - Device leakage [Unknown]
  - Device malfunction [Unknown]
  - Exposure via skin contact [Unknown]
  - Injection site pain [Unknown]

NARRATIVE: CASE EVENT DATE: 20241211
